FAERS Safety Report 8812103 (Version 2)
Quarter: 2012Q4

REPORT INFORMATION
  Report Type: Spontaneous
  Country: US (occurrence: None)
  Receive Date: 20120925
  Receipt Date: 20121010
  Transmission Date: 20130627
  Serious: Yes (Hospitalization)
  Sender: FDA-Public Use
  Company Number: 2012NUEUSA00126

PATIENT
  Age: 40 Year
  Sex: Female

DRUGS (8)
  1. NUEDEXTA (DEXTROMETHORPHAN HYDROBROMIDE 20 MG, QUINIDINE SULFATE 10 MG) CAPSULE, 20/10MG [Suspect]
     Indication: PSEUDOBULBAR AFFECT
     Dosage: 1 Cap, qd
     Dates: start: 20120830, end: 20120906
  2. NUEDEXTA (DEXTROMETHORPHAN HYDROBROMIDE 20 MG, QUINIDINE SULFATE 10 MG) CAPSULE, 20/10MG [Suspect]
     Indication: PSEUDOBULBAR AFFECT
     Dates: start: 201209, end: 20120908
  3. ATIVAN (LORAZEPAM) [Concomitant]
  4. LYRICA (PREGABALIN) [Concomitant]
  5. CELEXA (CITALOPRAM HYDROBROMIDE) [Concomitant]
  6. DEXILANT (DEXLANSOPRAZOLE) [Concomitant]
  7. METHADONE (METHADONE HYDROCHLORIDE) [Concomitant]
  8. DURAGESIC (FENTANYL) [Concomitant]

REACTIONS (2)
  - Urinary retention [None]
  - Dysuria [None]
